FAERS Safety Report 4978259-1 (Version None)
Quarter: 2006Q2

REPORT INFORMATION
  Report Type: 
  Country: None (occurrence: None)
  Receive Date: 20060420
  Receipt Date: 20060413
  Transmission Date: 20061013
  Serious: Yes (Other)
  Sender: FDA-Public Use
  Company Number: US-GLAXOSMITHKLINE-A0601767A

PATIENT
  Age: 56 Year
  Sex: Female

DRUGS (5)
  1. TUMS ULTRA TABLETS, ASSORTED FRUIT [Suspect]
     Indication: DYSPEPSIA
     Dosage: 2TAB THREE TIMES PER DAY
     Route: 048
     Dates: start: 20060401
  2. METHOTREXATE [Concomitant]
  3. DETROL LA [Concomitant]
  4. FOLIC ACID [Concomitant]
  5. FLUOXETINE HYDROCHLORIDE [Concomitant]

REACTIONS (1)
  - MELAENA [None]
